FAERS Safety Report 6806445-4 (Version None)
Quarter: 2010Q2

REPORT INFORMATION
  Report Type: 
  Country: None (occurrence: None)
  Receive Date: 20100629
  Receipt Date: 20080207
  Transmission Date: 20101027
  Serious: No
  Sender: FDA-Public Use
  Company Number: US-PFIZER INC-2008012266

PATIENT
  Sex: Male
  Weight: 113.63 kg

DRUGS (5)
  1. VIAGRA [Suspect]
     Indication: ERECTILE DYSFUNCTION
     Route: 048
     Dates: start: 20070501
  2. VERAPAMIL [Concomitant]
     Indication: HYPERTENSION
  3. MONTELUKAST SODIUM [Concomitant]
     Indication: ASTHMA
  4. ADVAIR DISKUS 100/50 [Concomitant]
     Indication: ASTHMA
  5. ACETYLSALICYLIC ACID [Concomitant]

REACTIONS (1)
  - HEADACHE [None]
